FAERS Safety Report 16624226 (Version 2)
Quarter: 2019Q3

REPORT INFORMATION
  Report Type: Other
  Country: US (occurrence: US)
  Receive Date: 20190724
  Receipt Date: 20190919
  Transmission Date: 20191004
  Serious: No
  Sender: FDA-Public Use
  Company Number: US-GLENMARK PHARMACEUTICALS-2019GMK041584

PATIENT

DRUGS (1)
  1. NORGESTIMATE AND ETHINYL ESTRADIOL TABLETS USP, 0.25 MG/0.035 MG [Suspect]
     Active Substance: ETHINYL ESTRADIOL\NORGESTIMATE
     Indication: ENDOMETRIOSIS
     Dosage: UNK
     Route: 065

REACTIONS (6)
  - Product substitution issue [Unknown]
  - Product use in unapproved indication [Unknown]
  - Intentional product use issue [Unknown]
  - Headache [Unknown]
  - Menorrhagia [Unknown]
  - Product outer packaging issue [Unknown]
